FAERS Safety Report 8870655 (Version 1)
Quarter: 2012Q4

REPORT INFORMATION
  Report Type: 
  Country: US (occurrence: US)
  Receive Date: 20121026
  Receipt Date: 20121026
  Transmission Date: 20130627
  Serious: No
  Sender: FDA-Public Use
  Company Number: US-AMGEN-USASP2012046878

PATIENT
  Sex: Female
  Weight: 160 kg

DRUGS (16)
  1. ENBREL [Suspect]
     Indication: PRODUCT USED FOR UNKNOWN INDICATION
     Dosage: 50 mg, qwk
     Route: 058
  2. CYMBALTA [Concomitant]
     Dosage: 20 mg, UNK
  3. LEUCOVORIN CA [Concomitant]
     Dosage: 10 mg, UNK
  4. METHOTREXATE [Concomitant]
     Dosage: 2.5 mg, UNK
  5. BUSPIRONE [Concomitant]
     Dosage: 10 mg, UNK
  6. LORAZEPAM [Concomitant]
     Dosage: 1 mg, UNK
  7. METFORMIN [Concomitant]
     Dosage: 1000 mg, UNK
  8. RANITIDINE [Concomitant]
     Dosage: 300 mg, UNK
  9. FOLIC ACID [Concomitant]
     Dosage: 1 mg, UNK
  10. GABAPENTIN [Concomitant]
     Dosage: 100 mg, UNK
  11. OXYBUTYNIN [Concomitant]
     Dosage: 5 mg, UNK
  12. DICLOFENAC [Concomitant]
     Dosage: 25 mg, UNK
  13. ABILIFY [Concomitant]
     Dosage: 5 mg, UNK
  14. METHYLPHENIDAT [Concomitant]
     Dosage: 10 mg, UNK
  15. QUETIAPINE [Concomitant]
     Dosage: 25 mg, UNK
  16. METHYLPRED [Concomitant]
     Dosage: 16 mg, UNK

REACTIONS (1)
  - Injection site pain [Unknown]
